FAERS Safety Report 14598586 (Version 1)
Quarter: 2018Q1

REPORT INFORMATION
  Report Type: Spontaneous
  Country: US (occurrence: US)
  Receive Date: 20180302
  Receipt Date: 20180302
  Transmission Date: 20180509
  Serious: Yes (Hospitalization)
  Sender: FDA-Public Use
  Company Number: None

PATIENT
  Sex: Female

DRUGS (9)
  1. ONFI [Concomitant]
     Active Substance: CLOBAZAM
  2. VITAMIN D [Concomitant]
     Active Substance: CHOLECALCIFEROL
  3. SODIUM [Concomitant]
     Active Substance: SODIUM
  4. CELEXA [Concomitant]
     Active Substance: CITALOPRAM HYDROBROMIDE
  5. COZAAR [Concomitant]
     Active Substance: LOSARTAN POTASSIUM
  6. RANITIDINE. [Concomitant]
     Active Substance: RANITIDINE
  7. VIMPAT [Concomitant]
     Active Substance: LACOSAMIDE
  8. ZANTAC [Concomitant]
     Active Substance: RANITIDINE HYDROCHLORIDE
  9. AFINITOR [Suspect]
     Active Substance: EVEROLIMUS
     Indication: TUBEROUS SCLEROSIS COMPLEX
     Route: 048
     Dates: start: 20170121

REACTIONS (3)
  - Pyrexia [None]
  - Platelet count decreased [None]
  - Red blood cell count decreased [None]
